FAERS Safety Report 17209951 (Version 1)
Quarter: 2019Q4

REPORT INFORMATION
  Report Type: Spontaneous
  Country: FR (occurrence: FR)
  Receive Date: 20191227
  Receipt Date: 20191227
  Transmission Date: 20200122
  Serious: Yes (Hospitalization)
  Sender: FDA-Public Use
  Company Number: FR-MYLANLABS-2019M1127709

PATIENT
  Age: 20 Year
  Sex: Male
  Weight: 95 kg

DRUGS (4)
  1. VINCRISTINE [Suspect]
     Active Substance: VINCRISTINE
     Indication: NEOPLASM MALIGNANT
     Dosage: 2 MILLIGRAM
     Route: 042
     Dates: start: 20190805, end: 20190805
  2. MERCAPTOPURINE. [Suspect]
     Active Substance: MERCAPTOPURINE
     Indication: NEOPLASM MALIGNANT
     Dosage: 60 MILLIGRAM/SQ. METER
     Route: 048
     Dates: start: 20190805, end: 20190811
  3. METHOTREXATE MYLAN [Suspect]
     Active Substance: METHOTREXATE SODIUM
     Indication: NEOPLASM MALIGNANT
     Dosage: 3 MILLIGRAM/SQ. METER
     Route: 042
     Dates: start: 20190805, end: 20190805
  4. ASPARAGINASE (BACTERIE/ESCHERICHIA COLI) [Suspect]
     Active Substance: ASPARAGINASE
     Indication: NEOPLASM MALIGNANT
     Dosage: 10000 INTERNATIONAL UNIT (/M2)
     Route: 042
     Dates: start: 20190806, end: 20190806

REACTIONS (2)
  - Stomatitis [Recovered/Resolved]
  - Feeding disorder [Recovered/Resolved]

NARRATIVE: CASE EVENT DATE: 20190811
